FAERS Safety Report 6040629-0 (Version None)
Quarter: 2009Q1

REPORT INFORMATION
  Report Type: 
  Country: None (occurrence: None)
  Receive Date: 20090116
  Receipt Date: 20080421
  Transmission Date: 20090719
  Serious: No
  Sender: FDA-Public Use
  Company Number: US-BRISTOL-MYERS SQUIBB COMPANY-14158521

PATIENT
  Age: 71 Year
  Sex: Male
  Weight: 83 kg

DRUGS (6)
  1. ABILIFY [Suspect]
     Indication: BIPOLAR DISORDER
     Dosage: REDUCED TO 5MG (1/2 TAB DAILY)AND LATER DISCONTINUED.
  2. ZOCOR [Concomitant]
  3. FLOMAX [Concomitant]
  4. ACTOPLUS MET [Concomitant]
  5. LAMICTAL [Concomitant]
  6. AVAPRO [Concomitant]

REACTIONS (2)
  - DYSKINESIA [None]
  - LETHARGY [None]
